FAERS Safety Report 18847721 (Version 1)
Quarter: 2021Q1

REPORT INFORMATION
  Report Type: Other
  Country: CA (occurrence: CA)
  Receive Date: 20210204
  Receipt Date: 20210204
  Transmission Date: 20210419
  Serious: Yes (Hospitalization)
  Sender: FDA-Public Use
  Company Number: CA-COVIS PHARMA B.V.-2021COV00045

PATIENT
  Age: 38 Year
  Sex: Male

DRUGS (23)
  1. OMNARIS [Suspect]
     Active Substance: CICLESONIDE
     Dosage: UNK
  2. ACETAMINOPHEN. [Suspect]
     Active Substance: ACETAMINOPHEN
     Dosage: UNK
  3. METHOTREXATE. [Suspect]
     Active Substance: METHOTREXATE
     Indication: VASCULITIS
     Dosage: 25 MG, 1X/WEEK
     Route: 048
  4. PREDNISONE. [Suspect]
     Active Substance: PREDNISONE
     Dosage: 10 MG, 1X/DAY
  5. PREDNISONE. [Suspect]
     Active Substance: PREDNISONE
     Dosage: 50 MG, UNK
  6. FOLIC ACID. [Suspect]
     Active Substance: FOLIC ACID
     Dosage: 5 MG, 1X/DAY
     Route: 048
  7. METHOTREXATE. [Suspect]
     Active Substance: METHOTREXATE
     Dosage: 15 MG, 1X/WEEK
     Route: 048
  8. VEDOLIZUMAB [Suspect]
     Active Substance: VEDOLIZUMAB
     Indication: COLITIS ULCERATIVE
     Dosage: UNK
     Route: 042
  9. PREDNISONE. [Suspect]
     Active Substance: PREDNISONE
     Dosage: 30 MG, UNK
  10. SINGULAIR [Suspect]
     Active Substance: MONTELUKAST SODIUM
     Indication: ASTHMA
     Dosage: UNK
  11. SPIRIVA [Suspect]
     Active Substance: TIOTROPIUM BROMIDE MONOHYDRATE
     Indication: ASTHMA
     Dosage: UNK
  12. PREDNISONE. [Suspect]
     Active Substance: PREDNISONE
     Dosage: 20 MG, UNK
  13. VITAMIN D [Concomitant]
     Active Substance: VITAMIN D NOS
     Indication: SUPPLEMENTATION THERAPY
  14. SYMBICORT [Suspect]
     Active Substance: BUDESONIDE\FORMOTEROL FUMARATE DIHYDRATE
     Dosage: UNK
  15. PREDNISONE. [Suspect]
     Active Substance: PREDNISONE
     Dosage: 10 MG, UNK
  16. CALCIUM [Concomitant]
     Active Substance: CALCIUM
     Indication: SUPPLEMENTATION THERAPY
  17. FORMOTEROL/MOMETASONE [Suspect]
     Active Substance: FORMOTEROL\MOMETASONE
     Dosage: UNK
  18. SALBUTAMOL [Suspect]
     Active Substance: ALBUTEROL
     Dosage: UNK
  19. UMECLIDINIUM BROMIDE [Suspect]
     Active Substance: UMECLIDINIUM BROMIDE
     Indication: ASTHMA
     Dosage: UNK
  20. PREDNISONE. [Suspect]
     Active Substance: PREDNISONE
     Dosage: 30 MG, UNK
  21. TYLENOL [Suspect]
     Active Substance: ACETAMINOPHEN
     Dosage: UNK
  22. VITAMIN B12 [Concomitant]
     Active Substance: CYANOCOBALAMIN
     Indication: SUPPLEMENTATION THERAPY
     Dosage: 1000 ?G, 1X/DAY
  23. FOLATE [Concomitant]
     Active Substance: FOLATE SODIUM
     Dosage: 5 MG, 1X/DAY

REACTIONS (29)
  - Interstitial lung disease [Unknown]
  - Pericardial effusion [Unknown]
  - Vasculitis [Unknown]
  - Dyspnoea [Unknown]
  - Condition aggravated [Unknown]
  - Anaemia [Unknown]
  - Myalgia [Unknown]
  - Obstructive airways disorder [Unknown]
  - Rectal haemorrhage [Unknown]
  - Wheezing [Unknown]
  - Chest discomfort [Unknown]
  - Iron deficiency [Unknown]
  - Treatment noncompliance [Unknown]
  - Hypotension [Unknown]
  - Pulmonary function test decreased [Unknown]
  - Sinusitis [Unknown]
  - Decreased appetite [Unknown]
  - Eosinophilia [Unknown]
  - Photophobia [Unknown]
  - Blood test abnormal [Unknown]
  - Cough [Unknown]
  - Systolic dysfunction [Unknown]
  - Dyspnoea exertional [Unknown]
  - Asthma [Unknown]
  - Headache [Unknown]
  - Insomnia [Unknown]
  - Therapeutic product effect incomplete [Unknown]
  - Abdominal pain [Unknown]
  - Gastrointestinal disorder [Unknown]
